FAERS Safety Report 19815119 (Version 1)
Quarter: 2021Q3

REPORT INFORMATION
  Report Type: Spontaneous
  Country: CA (occurrence: CA)
  Receive Date: 20210910
  Receipt Date: 20210910
  Transmission Date: 20211014
  Serious: Yes (Other)
  Sender: FDA-Public Use
  Company Number: CA-TAKEDA-2021TJP074609AA

PATIENT
  Sex: Female

DRUGS (7)
  1. FOLINIC ACID [Concomitant]
     Active Substance: LEUCOVORIN
     Indication: AUTOIMMUNE RETINOPATHY
     Dosage: 5 MILLIGRAM
     Route: 065
  2. METHOTREXATE. [Suspect]
     Active Substance: METHOTREXATE
     Indication: AUTOIMMUNE RETINOPATHY
     Dosage: 25 MILLIGRAM, 1/WEEK
     Route: 058
  3. BORTEZOMIB. [Suspect]
     Active Substance: BORTEZOMIB
     Indication: AUTOIMMUNE RETINOPATHY
     Dosage: 1.5 MILLIGRAM/SQ. METER
     Route: 058
     Dates: start: 201701
  4. RITUXIMAB. [Suspect]
     Active Substance: RITUXIMAB
     Dosage: 1000 MILLIGRAM, Q2WEEKS
     Route: 042
     Dates: start: 201701
  5. AZATHIOPRINE. [Suspect]
     Active Substance: AZATHIOPRINE
     Indication: AUTOIMMUNE RETINOPATHY
     Dosage: 150 MILLIGRAM
     Route: 048
  6. RITUXIMAB. [Suspect]
     Active Substance: RITUXIMAB
     Indication: AUTOIMMUNE RETINOPATHY
     Dosage: 1 GRAM
     Route: 042
  7. DEXAMETHASONE. [Concomitant]
     Active Substance: DEXAMETHASONE
     Indication: AUTOIMMUNE RETINOPATHY
     Dosage: 8 MILLIGRAM
     Route: 048
     Dates: start: 201701

REACTIONS (4)
  - Autoimmune retinopathy [Unknown]
  - Disease progression [Unknown]
  - Hepatotoxicity [Unknown]
  - Therapy non-responder [Unknown]
